FAERS Safety Report 4563782-4 (Version None)
Quarter: 2005Q1

REPORT INFORMATION
  Report Type: 
  Country: None (occurrence: None)
  Receive Date: 20050128
  Receipt Date: 20040924
  Transmission Date: 20050727
  Serious: No
  Sender: FDA-Public Use
  Company Number: US-GLAXOSMITHKLINE-A0527303A

PATIENT
  Age: 57 Year
  Sex: Male
  Weight: 126.8 kg

DRUGS (10)
  1. MEPRON [Suspect]
     Indication: INFECTION PROTOZOAL
     Dosage: 5CC TWICE PER DAY
     Route: 048
     Dates: start: 20040602
  2. MAVIK [Concomitant]
  3. ACCUPRIL [Concomitant]
  4. DIOVAN [Concomitant]
  5. EFFEXOR [Concomitant]
  6. CLOVE [Concomitant]
  7. WORMWOOD [Concomitant]
  8. BLACK WALNUT [Concomitant]
  9. ATOVAQUONE [Concomitant]
  10. ZITHROMAX [Concomitant]

REACTIONS (3)
  - FATIGUE [None]
  - RASH [None]
  - RHINORRHOEA [None]
